FAERS Safety Report 10644962 (Version 2)
Quarter: 2014Q4

REPORT INFORMATION
  Report Type: Spontaneous
  Country: AU (occurrence: AU)
  Receive Date: 20141211
  Receipt Date: 20141211
  Transmission Date: 20150529
  Serious: Yes (Hospitalization)
  Sender: FDA-Public Use
  Company Number: AU-UCBSA-2014019066

PATIENT
  Sex: Male

DRUGS (2)
  1. QUETIAPINE [Interacting]
     Active Substance: QUETIAPINE
     Indication: PRODUCT USED FOR UNKNOWN INDICATION
     Dosage: UNK UNK, 2X/DAY (BID), 50MG IN THE MORNING, 75 MG AT NIGHT
     Dates: end: 2014
  2. NEUPRO [Suspect]
     Active Substance: ROTIGOTINE
     Indication: PARKINSON^S DISEASE
     Dosage: 2 MG, ONCE DAILY (QD)
     Route: 062
     Dates: start: 2014, end: 2014

REACTIONS (3)
  - Balance disorder [Unknown]
  - Hallucination [Unknown]
  - Drug interaction [Unknown]

NARRATIVE: CASE EVENT DATE: 2014
